FAERS Safety Report 10089945 (Version 2)
Quarter: 2014Q2

REPORT INFORMATION
  Report Type: Report from Study
  Country: US (occurrence: US)
  Receive Date: 20140421
  Receipt Date: 20140421
  Transmission Date: 20141212
  Serious: No
  Sender: FDA-Public Use
  Company Number: US-ABBVIE-13P-163-1182812-00

PATIENT
  Age: 10 Year
  Sex: Female

DRUGS (3)
  1. LUPRON (PEDIATRIC) [Suspect]
     Indication: PRECOCIOUS PUBERTY
     Dates: start: 20130712, end: 20131231
  2. FLONASE [Concomitant]
     Indication: PRODUCT USED FOR UNKNOWN INDICATION
     Dosage: PER ACCUATION
  3. ZYRTEC [Concomitant]
     Indication: PRODUCT USED FOR UNKNOWN INDICATION

REACTIONS (6)
  - Abscess drainage [Recovering/Resolving]
  - Injection site abscess [Not Recovered/Not Resolved]
  - Injection site abscess [Not Recovered/Not Resolved]
  - Injection site erythema [Not Recovered/Not Resolved]
  - Injection site warmth [Not Recovered/Not Resolved]
  - Injection site pain [Not Recovered/Not Resolved]
